FAERS Safety Report 13095738 (Version 11)
Quarter: 2017Q3

REPORT INFORMATION
  Report Type: Report from Study
  Country: AU (occurrence: AU)
  Receive Date: 20170109
  Receipt Date: 20170711
  Transmission Date: 20171127
  Serious: Yes (Hospitalization, Other)
  Sender: FDA-Public Use
  Company Number: AU-ROCHE-1875085

PATIENT
  Age: 65 Year
  Sex: Female

DRUGS (1)
  1. ACTEMRA [Suspect]
     Active Substance: TOCILIZUMAB
     Indication: RHEUMATOID ARTHRITIS
     Route: 042
     Dates: start: 20160816

REACTIONS (17)
  - Dyspnoea [Unknown]
  - Acute coronary syndrome [Recovered/Resolved]
  - Blood test abnormal [Recovered/Resolved]
  - Rheumatoid arthritis [Unknown]
  - Tooth infection [Recovered/Resolved]
  - Weight decreased [Unknown]
  - Pain in extremity [Recovering/Resolving]
  - Paraesthesia [Unknown]
  - Chest pain [Unknown]
  - Tooth fracture [Unknown]
  - Pain [Unknown]
  - Chest discomfort [Recovered/Resolved]
  - Gait inability [Unknown]
  - Nerve compression [Unknown]
  - Arthralgia [Recovered/Resolved]
  - Troponin increased [Recovered/Resolved]
  - Hypoaesthesia [Unknown]

NARRATIVE: CASE EVENT DATE: 20161218
